FAERS Safety Report 7784558-0 (Version None)
Quarter: 2011Q3

REPORT INFORMATION
  Report Type: 
  Country: None (occurrence: None)
  Receive Date: 20110926
  Receipt Date: 20110919
  Transmission Date: 20111222
  Serious: Yes (Other)
  Sender: FDA-Public Use
  Company Number: 1000023698

PATIENT
  Age: 27 Year
  Sex: Male

DRUGS (1)
  1. CITALOPRAM HYDROBROMIDE [Suspect]

REACTIONS (7)
  - HALLUCINATION [None]
  - MANIA [None]
  - ABNORMAL BEHAVIOUR [None]
  - PARAESTHESIA [None]
  - AGGRESSION [None]
  - SPEECH DISORDER [None]
  - HYPERVENTILATION [None]
